FAERS Safety Report 8557528-2 (Version None)
Quarter: 2012Q3

REPORT INFORMATION
  Report Type: 
  Country: None (occurrence: None)
  Receive Date: 20120801
  Receipt Date: 20120727
  Transmission Date: 20120928
  Serious: Yes (Other)
  Sender: FDA-Public Use
  Company Number: US-PFIZER INC-2012084606

PATIENT
  Sex: Male

DRUGS (19)
  1. LABETALOL [Concomitant]
     Dosage: 100 MG, 2X/DAY
  2. WARFARIN [Concomitant]
     Dosage: UNK
  3. DOXYCYCLINE [Concomitant]
     Dosage: 50 (NO UNITS PROVIDED), DAILY
  4. TIKOSYN [Suspect]
     Indication: ATRIAL FIBRILLATION
     Dosage: 500 UG, 2X/DAY
     Route: 048
     Dates: start: 20110111, end: 20120403
  5. MULTI-VITAMINS [Concomitant]
     Dosage: UNK
  6. VITAMIN D2 [Concomitant]
     Dosage: 5000 IU, WEEKLY
  7. CYCLOBENZAPRINE [Interacting]
     Indication: BACK DISORDER
     Dosage: 10 MG, HS
     Route: 048
     Dates: end: 20120403
  8. LOSARTAN [Concomitant]
     Dosage: 50  (NO UNITS PROVIDED), DAILY
  9. CYCLOBENZAPRINE [Interacting]
     Indication: BACK PAIN
  10. POTASSIUM CHLORIDE [Concomitant]
     Dosage: 20 MEQ, 2X/DAY
  11. CLINDAMYCIN [Concomitant]
     Dosage: 300 MG, 3X/DAY
  12. ALLOPURINOL [Concomitant]
     Dosage: 100 MG, 2X/DAY
  13. TIKOSYN [Interacting]
     Dosage: 250 UG, 2X/DAY
     Route: 048
     Dates: start: 20120404
  14. PRAVASTATIN [Concomitant]
     Dosage: 20 (NO UNITS PROVIDED), DAILY
  15. ASPIRIN [Concomitant]
     Dosage: 325 (NO UNITS PROVIDED)
  16. FUROSEMIDE [Concomitant]
     Dosage: 80 MG, 2X/DAY
  17. MAG-OX [Concomitant]
     Dosage: 400 (NO UNITS PROVIDED), 2X/DAY
  18. HYDROCODONE BITARTRATE + ACETAMINOPHEN [Concomitant]
     Dosage: 7.5/300 (NO UNITS PROVIDED), 3X/DAY
  19. SALMETEROL XINAFOATE/FLUTICASONE PROPIONATE [Concomitant]
     Dosage: 500/50 (UNITS NOT PROVIDED), 2X/DAY

REACTIONS (2)
  - ELECTROCARDIOGRAM QT PROLONGED [None]
  - DRUG INTERACTION [None]
